FAERS Safety Report 17618724 (Version 1)
Quarter: 2020Q2

REPORT INFORMATION
  Report Type: Spontaneous
  Country: FR (occurrence: FR)
  Receive Date: 20200403
  Receipt Date: 20200403
  Transmission Date: 20200713
  Serious: Yes (Hospitalization, Other)
  Sender: FDA-Public Use
  Company Number: FR-BRISTOL-MYERS SQUIBB COMPANY-BMS-2020-027593

PATIENT
  Age: 66 Year
  Sex: Female

DRUGS (1)
  1. OPDIVO [Suspect]
     Active Substance: NIVOLUMAB
     Indication: LUNG NEOPLASM MALIGNANT
     Dosage: 1 DOSAGE FORM, Q4WK
     Route: 041
     Dates: start: 20161209, end: 20180420

REACTIONS (3)
  - Psoriasis [Recovered/Resolved]
  - Interstitial lung disease [Recovered/Resolved]
  - Mononeuropathy multiplex [Recovered/Resolved]

NARRATIVE: CASE EVENT DATE: 20170810
